FAERS Safety Report 20188652 (Version 4)
Quarter: 2022Q2

REPORT INFORMATION
  Report Type: Report from Study
  Country: US (occurrence: US)
  Receive Date: 20211215
  Receipt Date: 20220407
  Transmission Date: 20220720
  Serious: No
  Sender: FDA-Public Use
  Company Number: US-NOVARTISTESTPH-NVSC2021US287532

PATIENT
  Sex: Female

DRUGS (1)
  1. COSENTYX [Suspect]
     Active Substance: SECUKINUMAB
     Indication: Psoriatic arthropathy
     Dosage: 150 MG, QW (EVERY WEEK X 5 THEN EVERY 4 WEEKS)
     Route: 058
     Dates: start: 202111

REACTIONS (3)
  - Skin lesion [Unknown]
  - Pruritus [Unknown]
  - Drug ineffective [Unknown]
